FAERS Safety Report 20019746 (Version 1)
Quarter: 2021Q4

REPORT INFORMATION
  Report Type: Spontaneous
  Country: US (occurrence: US)
  Receive Date: 20211101
  Receipt Date: 20211101
  Transmission Date: 20220303
  Serious: No
  Sender: FDA-Public Use
  Company Number: US-009507513-1812USA006774

PATIENT
  Sex: Male
  Weight: 78.458 kg

DRUGS (2)
  1. COZAAR [Suspect]
     Active Substance: LOSARTAN POTASSIUM
     Indication: Anxiety
     Dosage: 25 MILLIGRAM
     Route: 048
     Dates: start: 1999
  2. DONEPEZIL [Concomitant]
     Active Substance: DONEPEZIL
     Indication: Anxiety
     Dosage: 5 MILLIGRAM
     Dates: start: 1999

REACTIONS (1)
  - Product use in unapproved indication [Unknown]

NARRATIVE: CASE EVENT DATE: 19990101
